FAERS Safety Report 9785120 (Version 2)
Quarter: 2014Q1

REPORT INFORMATION
  Report Type: Spontaneous
  Country: US (occurrence: US)
  Receive Date: 20131227
  Receipt Date: 20140217
  Transmission Date: 20141002
  Serious: Yes (Hospitalization, Other)
  Sender: FDA-Public Use
  Company Number: US-SUN PHARMACEUTICAL INDUSTRIES LTD-2013SUN05298

PATIENT
  Sex: 0

DRUGS (5)
  1. PROMETHAZINE HYDROCHLORIDE AND CODEINE PHOSPHATE 6.25MG/5ML [Suspect]
     Indication: COUGH
     Dosage: FIRST DOSE AT 9 AM AND SECOND DOSE AT 1:30 PM
     Route: 065
     Dates: start: 20130220
  2. LEVOFLOXACIN [Suspect]
     Dosage: 1 DF, UNK
     Route: 065
     Dates: start: 20130220
  3. PROAIR [Suspect]
     Dosage: RECEIVED ONCE OR TWICE (UNK)
     Route: 065
     Dates: start: 20130220
  4. LEVAQUIN [Concomitant]
  5. VITAMINS [Concomitant]

REACTIONS (5)
  - Spinal fracture [Recovering/Resolving]
  - Back pain [Recovering/Resolving]
  - Discomfort [Recovering/Resolving]
  - Depression [Not Recovered/Not Resolved]
  - Convulsion [Recovering/Resolving]
